FAERS Safety Report 9517255 (Version 1)
Quarter: 2013Q1

REPORT INFORMATION
  Report Type: Spontaneous
  Country: US (occurrence: None)
  Receive Date: 20130305
  Receipt Date: 20130305
  Transmission Date: 20140127
  Serious: Yes (Other)
  Sender: FDA-Public Use
  Company Number: 163-21880-12032124

PATIENT
  Age: 72 Year
  Sex: Male

DRUGS (2)
  1. REVLIMID (LENALIDOMIDE) [Suspect]
     Indication: PLASMA CELL MYELOMA
     Route: 048
     Dates: start: 20120126, end: 20120228
  2. COUMADIN (WARFARIN SODIUM) [Suspect]

REACTIONS (3)
  - Epistaxis [None]
  - Anaemia [None]
  - Drug dose omission [None]
